FAERS Safety Report 20762448 (Version 2)
Quarter: 2022Q3

REPORT INFORMATION
  Report Type: Spontaneous
  Country: FR (occurrence: FR)
  Receive Date: 20220428
  Receipt Date: 20220701
  Transmission Date: 20221027
  Serious: Yes (Hospitalization)
  Sender: FDA-Public Use
  Company Number: None

PATIENT
  Age: 66 Year
  Sex: Male
  Weight: 75.6 kg

DRUGS (2)
  1. CLINDAMYCIN [Suspect]
     Active Substance: CLINDAMYCIN
     Indication: Antibiotic prophylaxis
     Dosage: 600 MG, 3X/DAY
     Route: 048
     Dates: start: 20220319, end: 20220321
  2. GENTAMICIN [Suspect]
     Active Substance: GENTAMICIN
     Indication: Antibiotic prophylaxis
     Dosage: 400 MG, 1X/DAY
     Route: 048
     Dates: start: 20220331, end: 20220401

REACTIONS (5)
  - Arthralgia [Recovered/Resolved]
  - Purpura [Recovered/Resolved]
  - Myalgia [Recovered/Resolved]
  - Petechiae [Recovered/Resolved]
  - Off label use [Unknown]

NARRATIVE: CASE EVENT DATE: 20220319
